FAERS Safety Report 4623145-X (Version None)
Quarter: 2005Q1

REPORT INFORMATION
  Report Type: 
  Country: None (occurrence: None)
  Receive Date: 20050330
  Receipt Date: 20050318
  Transmission Date: 20050727
  Serious: Yes (Hospitalization)
  Sender: FDA-Public Use
  Company Number: US-SANOFI-SYNTHELABO-A03200500768

PATIENT
  Sex: Female

DRUGS (5)
  1. PLAVIX [Suspect]
     Indication: DRUG USE FOR UNKNOWN INDICATION
     Dosage: UNK
     Route: 048
     Dates: end: 20040801
  2. AMBIEN [Suspect]
     Dosage: UNK
     Route: 048
  3. THALOMID [Suspect]
     Indication: WALDENSTROM'S MACROGLOBULINAEMIA
     Route: 048
     Dates: start: 20040801, end: 20040801
  4. XANAX [Suspect]
     Indication: DRUG USE FOR UNKNOWN INDICATION
     Dosage: UNK
     Route: 065
  5. ANTIHYPERTENSIVE NOS [Suspect]
     Indication: HYPERTENSION
     Dosage: UNK
     Route: 065
     Dates: end: 20040801

REACTIONS (3)
  - FATIGUE [None]
  - HYPOTENSION [None]
  - INSOMNIA [None]
